FAERS Safety Report 13701460 (Version 1)
Quarter: 2017Q2

REPORT INFORMATION
  Report Type: Spontaneous
  Country: US (occurrence: US)
  Receive Date: 20170628
  Receipt Date: 20170628
  Transmission Date: 20170830
  Serious: Yes (Other)
  Sender: FDA-Public Use
  Company Number: None

PATIENT
  Age: 66 Year
  Sex: Female
  Weight: 63 kg

DRUGS (8)
  1. GENERIC LISINOPREL [Concomitant]
  2. PROAIR HFA [Concomitant]
     Active Substance: ALBUTEROL SULFATE
  3. FISH OIL [Concomitant]
     Active Substance: FISH OIL
  4. CALCIUM WITH VIT E [Concomitant]
  5. GENERIC BUPROPIOIN [Concomitant]
  6. GENERIC ZYRTEC [Concomitant]
     Active Substance: CETIRIZINE HYDROCHLORIDE
  7. GENERUC PROZAC [Concomitant]
  8. MOMETASONE FURATE MONHYDRATE [Suspect]
     Active Substance: MOMETASONE FUROATE MONOHYDRATE
     Indication: RHINITIS
     Dosage: OTHER STRENGTH:MCG;QUANTITY:2 SPRAY(S);OTHER ROUTE:SPRAYED INTO NOSE?
     Dates: start: 20170501, end: 20170625

REACTIONS (4)
  - Rhinitis [None]
  - Drug ineffective [None]
  - Condition aggravated [None]
  - Product substitution issue [None]

NARRATIVE: CASE EVENT DATE: 20170501
